FAERS Safety Report 17413089 (Version 1)
Quarter: 2020Q1

REPORT INFORMATION
  Report Type: Spontaneous
  Country: DE (occurrence: DE)
  Receive Date: 20200213
  Receipt Date: 20200213
  Transmission Date: 20200409
  Serious: Yes (Other)
  Sender: FDA-Public Use
  Company Number: DE-TEVA-2020-DE-1183078

PATIENT
  Age: 10 Decade
  Sex: Female

DRUGS (1)
  1. FUROSEMID [Suspect]
     Active Substance: FUROSEMIDE
     Dosage: UNKNOWN FORM STRENGTH
     Route: 048

REACTIONS (2)
  - Diarrhoea [Unknown]
  - Cardiac fibrillation [Unknown]
